FAERS Safety Report 6291568-1 (Version None)
Quarter: 2009Q3

REPORT INFORMATION
  Report Type: 
  Country: None (occurrence: None)
  Receive Date: 20090730
  Receipt Date: 20090718
  Transmission Date: 20100115
  Serious: Yes (Other)
  Sender: FDA-Public Use
  Company Number: US-MYLANLABS-2009S1012847

PATIENT
  Age: 43 Year
  Sex: Male
  Weight: 101 kg

DRUGS (2)
  1. GEMFIBROZIL [Suspect]
     Indication: HYPERTRIGLYCERIDAEMIA
     Route: 048
  2. INTERFERON ALFA [Interacting]
     Indication: MALIGNANT MELANOMA
     Dosage: WEEKS 1, 2, 3, 4, 8, 16, 24, 32, 40, 48 AND THEN EVERY 8 WEEKS UNTIL WEEK 104
     Route: 058

REACTIONS (2)
  - DRUG INTERACTION [None]
  - HEPATIC ENZYME INCREASED [None]
